FAERS Safety Report 8814647 (Version 1)
Quarter: 2012Q4

REPORT INFORMATION
  Report Type: 
  Country: GB (occurrence: GB)
  Receive Date: 20120928
  Receipt Date: 20120928
  Transmission Date: 20130627
  Serious: Yes (Other)
  Sender: FDA-Public Use
  Company Number: GB-SANOFI-AVENTIS-2012SA062267

PATIENT
  Age: 41 Year
  Sex: Female
  Weight: 68 kg

DRUGS (4)
  1. CLEXANE [Suspect]
     Indication: MISCARRIAGE
     Route: 058
     Dates: start: 20120816, end: 20120911
  2. ASPIRIN [Concomitant]
     Indication: MISCARRIAGE
     Route: 048
     Dates: start: 20120816, end: 20120911
  3. CYCLOGEST [Concomitant]
     Indication: MISCARRIAGE
     Route: 067
     Dates: start: 20120816, end: 20120911
  4. FLUCLOXACILLIN [Concomitant]
     Indication: INFECTION
     Route: 048
     Dates: start: 20120830

REACTIONS (2)
  - Abortion spontaneous [Unknown]
  - Exposure during pregnancy [Unknown]
